FAERS Safety Report 9701501 (Version 1)
Quarter: 2013Q4

REPORT INFORMATION
  Report Type: Spontaneous
  Country: US (occurrence: US)
  Receive Date: 20131121
  Receipt Date: 20131121
  Transmission Date: 20140711
  Serious: Yes (Other)
  Sender: FDA-Public Use
  Company Number: US-MYLANLABS-2012S1020915

PATIENT
  Age: 42 Year
  Sex: Male

DRUGS (5)
  1. AMIODARONE HYDROCHLORIDE INJECTION [Suspect]
     Dosage: AMIODARONE 450MG (9ML) DILUTED IN 250ML D5W
     Route: 042
     Dates: start: 20120929, end: 20120929
  2. AMIODARONE [Concomitant]
     Route: 048
  3. ENALAPRIL [Concomitant]
     Route: 048
  4. CARDIZEM [Concomitant]
     Route: 048
  5. METOPROLOL SUCCINATE EXTENDED-RELEASE TABLETS USP [Concomitant]
     Route: 048

REACTIONS (1)
  - Hypersensitivity [Recovered/Resolved]
